FAERS Safety Report 15575237 (Version 2)
Quarter: 2018Q4

REPORT INFORMATION
  Report Type: Report from Study
  Country: CR (occurrence: CR)
  Receive Date: 20181101
  Receipt Date: 20181114
  Transmission Date: 20190205
  Serious: Yes (Other)
  Sender: FDA-Public Use
  Company Number: CR-SA-2018SA298068

PATIENT
  Age: 86 Year
  Sex: Female

DRUGS (4)
  1. INSULIN GLARGINE [Suspect]
     Active Substance: INSULIN GLARGINE
     Indication: DIABETES MELLITUS
     Dosage: 10 IU, QD
     Route: 058
     Dates: start: 2010
  2. IRBESARTAN. [Concomitant]
     Active Substance: IRBESARTAN
     Indication: HYPERTENSION
     Dosage: 1 DF, QD
     Route: 048
  3. CORYOL [CARVEDILOL] [Concomitant]
     Dosage: 1 DF, QD
     Route: 048
  4. TAFIL [ALPRAZOLAM] [Concomitant]
     Dosage: 1 DF, QD
     Route: 048

REACTIONS (4)
  - Eye disorder [Unknown]
  - Glaucoma [Unknown]
  - Fall [Unknown]
  - Cataract [Recovered/Resolved]

NARRATIVE: CASE EVENT DATE: 2010
